FAERS Safety Report 9459283 (Version 2)
Quarter: 2013Q3

REPORT INFORMATION
  Report Type: Report from Study
  Country: US (occurrence: US)
  Receive Date: 20130815
  Receipt Date: 20130816
  Transmission Date: 20140515
  Serious: Yes (Death)
  Sender: FDA-Public Use
  Company Number: US-ROCHE-1262132

PATIENT
  Sex: Male
  Weight: 119.4 kg

DRUGS (1)
  1. AVASTIN [Suspect]
     Indication: GLIOBLASTOMA MULTIFORME
     Dosage: EVERY 28 DAYS
     Route: 042
     Dates: start: 20130530

REACTIONS (1)
  - Glioblastoma [Fatal]
